FAERS Safety Report 6219323-9 (Version None)
Quarter: 2009Q2

REPORT INFORMATION
  Report Type: 
  Country: None (occurrence: None)
  Receive Date: 20090609
  Receipt Date: 20090601
  Transmission Date: 20091009
  Serious: Yes (Hospitalization)
  Sender: FDA-Public Use
  Company Number: PL-MEDIMMUNE-MEDI-0008416

PATIENT
  Sex: Male

DRUGS (4)
  1. SYNAGIS [Suspect]
     Indication: BRONCHOPULMONARY DYSPLASIA
     Route: 030
     Dates: start: 20090227, end: 20090227
  2. SYNAGIS [Suspect]
     Route: 030
     Dates: start: 20090326
  3. DUOVENT [Concomitant]
  4. BUDESOMIDE [Concomitant]

REACTIONS (2)
  - BRONCHITIS [None]
  - NERVOUSNESS [None]
